FAERS Safety Report 8777853 (Version 2)
Quarter: 2012Q4

REPORT INFORMATION
  Report Type: 
  Country: US (occurrence: US)
  Receive Date: 20120912
  Receipt Date: 20121030
  Transmission Date: 20130627
  Serious: No
  Sender: FDA-Public Use
  Company Number: US-ASTRAZENECA-2012SE64930

PATIENT
  Age: 57 Year
  Sex: Male
  Weight: 98.4 kg

DRUGS (4)
  1. SYMBICORT [Suspect]
     Indication: CHRONIC OBSTRUCTIVE PULMONARY DISEASE
     Dosage: 160/4.5 MCG 2 PUFFS DAILY
     Route: 055
     Dates: start: 200905
  2. AMLODIPINE [Concomitant]
  3. ASPIRIN [Concomitant]
  4. VITAMIN B [Concomitant]

REACTIONS (3)
  - Sinus disorder [Unknown]
  - Hypertension [Unknown]
  - Off label use [Unknown]
